FAERS Safety Report 15180328 (Version 1)
Quarter: 2018Q3

REPORT INFORMATION
  Report Type: Spontaneous
  Country: AU (occurrence: AU)
  Receive Date: 20180723
  Receipt Date: 20180723
  Transmission Date: 20181010
  Serious: Yes (Hospitalization, Other)
  Sender: FDA-Public Use
  Company Number: AU-STRIDES ARCOLAB LIMITED-2018SP005999

PATIENT

DRUGS (9)
  1. CODEINE [Suspect]
     Active Substance: CODEINE
     Indication: HEADACHE
  2. PARACETAMOL [Suspect]
     Active Substance: ACETAMINOPHEN
     Indication: HEADACHE
  3. IBUPROFEN. [Suspect]
     Active Substance: IBUPROFEN
     Indication: HEADACHE
  4. IBUPROFEN. [Suspect]
     Active Substance: IBUPROFEN
     Indication: PYREXIA
  5. CODEINE [Suspect]
     Active Substance: CODEINE
     Indication: MYALGIA
  6. PARACETAMOL [Suspect]
     Active Substance: ACETAMINOPHEN
     Indication: MYALGIA
     Dosage: UNKNOWN
     Route: 065
  7. IBUPROFEN. [Suspect]
     Active Substance: IBUPROFEN
     Indication: MYALGIA
     Dosage: UNKNOWN
     Route: 065
  8. PARACETAMOL [Suspect]
     Active Substance: ACETAMINOPHEN
     Indication: PYREXIA
  9. CODEINE [Suspect]
     Active Substance: CODEINE
     Indication: PYREXIA
     Dosage: UNKNOWN
     Route: 065

REACTIONS (17)
  - Nail disorder [Not Recovered/Not Resolved]
  - Toxic epidermal necrolysis [Recovered/Resolved]
  - Genital erosion [Recovered/Resolved]
  - Genital blister [Recovered/Resolved]
  - Self-medication [Unknown]
  - Diarrhoea [Unknown]
  - Respiratory failure [Recovered/Resolved]
  - Vomiting [Unknown]
  - Stevens-Johnson syndrome [Recovered/Resolved]
  - Dermatitis bullous [Recovered/Resolved]
  - Rash vesicular [Recovered/Resolved]
  - Skin exfoliation [Recovered/Resolved]
  - Oral mucosal blistering [Recovered/Resolved]
  - Rash erythematous [Recovered/Resolved]
  - Nikolsky^s sign [Recovered/Resolved]
  - Oral mucosa erosion [Recovered/Resolved]
  - Nausea [Unknown]
